FAERS Safety Report 24323271 (Version 1)
Quarter: 2024Q3

REPORT INFORMATION
  Report Type: Spontaneous
  Country: GB (occurrence: GB)
  Receive Date: 20240916
  Receipt Date: 20240916
  Transmission Date: 20241016
  Serious: Yes (Hospitalization, Other)
  Sender: BOEHRINGER INGELHEIM
  Company Number: None

PATIENT
  Age: 76 Year
  Sex: Male

DRUGS (1)
  1. NINTEDANIB [Suspect]
     Active Substance: NINTEDANIB
     Indication: Product used for unknown indication

REACTIONS (2)
  - Sciatica [Recovered/Resolved]
  - Urinary retention [Recovered/Resolved]
